FAERS Safety Report 17421119 (Version 1)
Quarter: 2020Q1

REPORT INFORMATION
  Report Type: Spontaneous
  Country: FR (occurrence: FR)
  Receive Date: 20200214
  Receipt Date: 20200214
  Transmission Date: 20200409
  Serious: Yes (Death)
  Sender: FDA-Public Use
  Company Number: FR-MYLANLABS-2020M1016669

PATIENT
  Age: 37 Year
  Sex: Male

DRUGS (7)
  1. PIVALONE                           /03009501/ [Concomitant]
     Active Substance: NEOMYCIN\POLYMYXIN B\TIXOCORTOL
     Dosage: UNK
  2. FENTANYL. [Suspect]
     Active Substance: FENTANYL
     Indication: PRODUCT USED FOR UNKNOWN INDICATION
     Dosage: 12 MICROGRAM
     Route: 062
     Dates: start: 20191124, end: 20191124
  3. METHADONE [Concomitant]
     Active Substance: METHADONE HYDROCHLORIDE
     Dosage: UNK
  4. IBUPROFENE [Concomitant]
     Active Substance: IBUPROFEN
     Dosage: UNK
  5. OXAZEPAM. [Concomitant]
     Active Substance: OXAZEPAM
     Dosage: UNK
  6. DOLIPRANE [Concomitant]
     Active Substance: ACETAMINOPHEN
     Dosage: UNK
  7. ACTILYSE [Suspect]
     Active Substance: ALTEPLASE
     Indication: ISCHAEMIC STROKE
     Dosage: NON RENSEIGN?E
     Route: 042
     Dates: start: 20191124, end: 20191124

REACTIONS (2)
  - Cerebral haemorrhage [Fatal]
  - Withdrawal syndrome [Unknown]

NARRATIVE: CASE EVENT DATE: 20191124
